FAERS Safety Report 6089440-5 (Version None)
Quarter: 2009Q1

REPORT INFORMATION
  Report Type: 
  Country: None (occurrence: None)
  Receive Date: 20090220
  Receipt Date: 20090220
  Transmission Date: 20090719
  Serious: Yes (Other)
  Sender: FDA-Public Use
  Company Number: None

PATIENT
  Sex: Female
  Weight: 83 kg

DRUGS (2)
  1. SOTALOL HCL [Suspect]
     Dosage: 80 MG BID
     Dates: start: 20081218, end: 20081230
  2. CIPROFLOXACIN HCL [Suspect]
     Dates: start: 20081212, end: 20081222

REACTIONS (2)
  - ELECTROCARDIOGRAM QT PROLONGED [None]
  - RENAL IMPAIRMENT [None]
